FAERS Safety Report 6345668-8 (Version None)
Quarter: 2009Q3

REPORT INFORMATION
  Report Type: 
  Country: None (occurrence: None)
  Receive Date: 20090909
  Receipt Date: 20090831
  Transmission Date: 20100115
  Serious: Yes (Other)
  Sender: FDA-Public Use
  Company Number: US-JNJCH-2009023678

PATIENT
  Age: 61 Year
  Sex: Female
  Weight: 74.8 kg

DRUGS (22)
  1. BENADRYL SEVERE ALLERGY + SINUS HEADACHE W/PE [Suspect]
     Indication: HYPERSENSITIVITY
     Dosage: TEXT:2 TABLETS ONCE
     Route: 048
     Dates: start: 20090831, end: 20090831
  2. ZYRTEC [Concomitant]
     Indication: HYPERSENSITIVITY
     Dosage: TEXT:10 MG
     Route: 065
  3. LASIX [Concomitant]
     Indication: DIABETES MELLITUS
     Dosage: TEXT:40 MG
     Route: 065
  4. DRUG USED IN DIABETES [Concomitant]
     Indication: DIABETES MELLITUS
     Dosage: TEXT:500 MG
     Route: 065
  5. SITAGLIPTIN [Concomitant]
     Indication: DIABETES MELLITUS
     Dosage: TEXT:ONCE
     Route: 065
  6. PLAVIX [Concomitant]
     Indication: DRUG USE FOR UNKNOWN INDICATION
     Dosage: TEXT:75MG
     Route: 065
  7. CARDIOVASCULAR SYSTEM DRUGS [Concomitant]
     Indication: DRUG USE FOR UNKNOWN INDICATION
     Dosage: TEXT:UNKNOWN
     Route: 065
  8. ALL OTHER THERAPEUTIC PRODUCTS [Concomitant]
     Indication: DRUG USE FOR UNKNOWN INDICATION
     Dosage: TEXT:UNKNOWN
     Route: 065
  9. CAPTOPRIL [Concomitant]
     Indication: DRUG USE FOR UNKNOWN INDICATION
     Dosage: TEXT:25MG
     Route: 065
  10. NEURONTIN [Concomitant]
     Indication: BACK DISORDER
     Dosage: TEXT:300MG
     Route: 065
  11. MUSCLE RELAXANTS [Concomitant]
     Indication: BACK DISORDER
     Dosage: TEXT:UNKNOWN
     Route: 065
  12. ZANAFLEX [Concomitant]
     Indication: BACK DISORDER
     Dosage: TEXT:4MG
     Route: 065
  13. DURAGESIC-100 [Concomitant]
     Indication: BACK DISORDER
     Dosage: TEXT:50MC
     Route: 065
  14. CELEBREX [Concomitant]
     Indication: DRUG USE FOR UNKNOWN INDICATION
     Dosage: TEXT:200MG
     Route: 065
  15. XANAX [Concomitant]
     Indication: DRUG USE FOR UNKNOWN INDICATION
     Dosage: TEXT:1 TABLET
     Route: 048
  16. SINGULAIR ^DIECKMANN^ [Concomitant]
     Indication: HYPERSENSITIVITY
     Dosage: TEXT:10 MG
     Route: 065
  17. DIPHENHYDRAMINE TANNATE [Concomitant]
     Indication: HYPERSENSITIVITY
     Dosage: TEXT:25MG
     Route: 065
  18. FLONASE [Concomitant]
     Indication: DRUG USE FOR UNKNOWN INDICATION
     Dosage: TEXT:0.05
     Route: 065
  19. PROAIR HFA [Concomitant]
     Indication: DRUG USE FOR UNKNOWN INDICATION
     Dosage: TEXT:UNKNOWN
     Route: 065
  20. ADVAIR HFA [Concomitant]
     Indication: DRUG USE FOR UNKNOWN INDICATION
     Dosage: TEXT:250/50
     Route: 065
  21. EPIPEN [Concomitant]
     Indication: ASTHMA
     Dosage: TEXT:UNKNOWN
     Route: 065
  22. SYNTHROID [Concomitant]
     Indication: DRUG USE FOR UNKNOWN INDICATION
     Dosage: TEXT:50MCG
     Route: 065

REACTIONS (4)
  - APHONIA [None]
  - BLISTER [None]
  - DYSPNOEA [None]
  - PRURITUS [None]
